FAERS Safety Report 7995758 (Version 4)
Quarter: 2013Q2

REPORT INFORMATION
  Report Type: Report from Study
  Country: UG (occurrence: UG)
  Receive Date: 20110617
  Receipt Date: 20130531
  Transmission Date: 20140414
  Serious: Yes (Death, Life-Threatening, Hospitalization, Disabling)
  Sender: FDA-Public Use
  Company Number: UG-ABBOTT-11P-165-0732341-00

PATIENT
  Age: 41 Year
  Sex: Female

DRUGS (7)
  1. ALUVIA TABLETS [Suspect]
     Indication: HIV INFECTION
     Route: 048
     Dates: start: 20110419
  2. RALTEGRAVIR [Concomitant]
     Indication: HIV INFECTION
     Dates: start: 20110419
  3. SEPTRIN [Concomitant]
     Indication: PRODUCT USED FOR UNKNOWN INDICATION
     Dates: start: 20110219
  4. ETHAMBUTOL [Concomitant]
     Indication: TUBERCULOSIS
     Dates: start: 20110219
  5. VITAMIN B COMPLEX [Concomitant]
     Indication: PRODUCT USED FOR UNKNOWN INDICATION
     Dates: start: 20110219
  6. FEFOL [Concomitant]
     Indication: PRODUCT USED FOR UNKNOWN INDICATION
     Dates: start: 20110219
  7. ISONIAZID [Concomitant]
     Indication: TUBERCULOSIS
     Dates: start: 20110219

REACTIONS (8)
  - Dyspnoea [Unknown]
  - Activities of daily living impaired [Unknown]
  - Dyspnoea [Unknown]
  - Breath sounds abnormal [Unknown]
  - Pulmonary physical examination abnormal [Unknown]
  - Pneumothorax spontaneous [Not Recovered/Not Resolved]
  - Breath sounds absent [Unknown]
  - Respiratory distress [Fatal]
